FAERS Safety Report 10392846 (Version 6)
Quarter: 2015Q1

REPORT INFORMATION
  Report Type: Spontaneous
  Country: US (occurrence: US)
  Receive Date: 20140819
  Receipt Date: 20150123
  Transmission Date: 20150720
  Serious: Yes (Death, Hospitalization, Other)
  Sender: FDA-Public Use
  Company Number: US-JNJFOC-20140812736

PATIENT
  Age: 77 Year
  Sex: Male
  Weight: 46.9 kg

DRUGS (8)
  1. FLOMAX [Concomitant]
     Active Substance: TAMSULOSIN HYDROCHLORIDE
     Route: 048
  2. PLAVIX [Suspect]
     Active Substance: CLOPIDOGREL BISULFATE
     Indication: PRODUCT USED FOR UNKNOWN INDICATION
     Route: 048
  3. AMIODARONE [Concomitant]
     Active Substance: AMIODARONE
     Route: 048
  4. LEVOTHYROXINE [Concomitant]
     Active Substance: LEVOTHYROXINE
     Route: 048
  5. PROSCAR [Concomitant]
     Active Substance: FINASTERIDE
     Route: 048
  6. XARELTO [Suspect]
     Active Substance: RIVAROXABAN
     Indication: PRODUCT USED FOR UNKNOWN INDICATION
     Dosage: 5 P.M.
     Route: 048
     Dates: end: 201408
  7. COREG [Concomitant]
     Active Substance: CARVEDILOL
     Route: 048
  8. LISINOPRIL. [Concomitant]
     Active Substance: LISINOPRIL
     Route: 048

REACTIONS (6)
  - Subarachnoid haemorrhage [Fatal]
  - Coronary artery bypass [Unknown]
  - Haemorrhagic stroke [Fatal]
  - Cerebral haematoma [Not Recovered/Not Resolved]
  - Unresponsive to stimuli [Not Recovered/Not Resolved]
  - Cardio-respiratory arrest [Fatal]

NARRATIVE: CASE EVENT DATE: 201403
